FAERS Safety Report 7028465-X (Version None)
Quarter: 2010Q4

REPORT INFORMATION
  Report Type: 
  Country: None (occurrence: None)
  Receive Date: 20101005
  Receipt Date: 20100923
  Transmission Date: 20110411
  Serious: Yes (Other)
  Sender: FDA-Public Use
  Company Number: FR-WYE-H17587510

PATIENT
  Sex: Female

DRUGS (18)
  1. INIPOMP [Suspect]
     Route: 048
     Dates: start: 20100321, end: 20100512
  2. PERINDOPRIL ERBUMINE [Suspect]
     Dosage: 8 MG, FREQUENCY UNSPECIFIED
     Route: 048
     Dates: start: 20100422, end: 20100512
  3. TARGOCID [Suspect]
     Indication: ENDOCARDITIS
     Dosage: 600 MILLIGRAM, 2 DOSAGE FORMS
     Route: 042
     Dates: start: 20100322, end: 20100402
  4. TARGOCID [Suspect]
     Route: 042
     Dates: start: 20100422, end: 20100511
  5. CARDENSIEL [Suspect]
     Dosage: UNSPECIFIED
     Route: 048
  6. AMLODIPINE [Suspect]
     Dosage: UNSPECIFIED
     Route: 048
     Dates: end: 20100510
  7. LOVENOX [Suspect]
     Dosage: 1 DOSAGE FORMS
     Route: 058
     Dates: start: 20100505, end: 20100512
  8. ELIDIUR [Concomitant]
     Indication: HYPERTENSION
     Dosage: UNSPECIFIED
     Route: 048
     Dates: start: 20100321
  9. HEPARIN [Concomitant]
     Dosage: 1600 IU (5000 IU/0.2ML)
     Route: 042
     Dates: start: 20100419, end: 20100422
  10. VALACYCLOVIR HYDROCHLORIDE [Concomitant]
     Dosage: 2 DOSAGE FORMS
     Route: 048
     Dates: start: 20100424, end: 20100505
  11. KARDEGIC [Concomitant]
     Dosage: UNSPECIFIED
     Route: 048
  12. ORBENIN CAP [Suspect]
     Indication: STAPHYLOCOCCAL INFECTION
  13. RIFADIN [Suspect]
     Indication: STAPHYLOCOCCAL INFECTION
     Dosage: 2 DOSAGE FORMS
     Route: 042
     Dates: start: 20100402, end: 20100512
  14. TEMESTA [Concomitant]
     Dosage: UNSPECIFIED
     Route: 048
  15. LANTUS [Concomitant]
     Dosage: UNSPECIFIED
     Route: 058
     Dates: start: 20100321
  16. ZOLPIDEM TARTRATE [Concomitant]
     Dosage: UNSPECIFIED
     Route: 048
  17. ACARBOSE [Concomitant]
  18. LASIX [Suspect]
     Dosage: 2 DOSAGE FORMS (20MG/2ML)
     Route: 042
     Dates: start: 20100321, end: 20100512

REACTIONS (2)
  - INTERSTITIAL LUNG DISEASE [None]
  - RENAL FAILURE ACUTE [None]
